FAERS Safety Report 8266427-5 (Version None)
Quarter: 2012Q2

REPORT INFORMATION
  Report Type: 
  Country: None (occurrence: None)
  Receive Date: 20120406
  Receipt Date: 20120402
  Transmission Date: 20120825
  Serious: Yes (Death, Other)
  Sender: FDA-Public Use
  Company Number: US-ELI_LILLY_AND_COMPANY-US201107004539

PATIENT
  Sex: Male

DRUGS (13)
  1. AVAPRO [Concomitant]
     Dosage: 300 MG, BID
     Route: 048
     Dates: start: 20090520
  2. METFORMIN HCL [Concomitant]
     Dosage: 1000 MG, BID
     Route: 048
     Dates: start: 20090213
  3. INDOMETHACIN [Concomitant]
     Dosage: 25 MG, TID
     Route: 048
     Dates: start: 20060620
  4. HYCODAN [Concomitant]
     Dosage: UNK UNK, EACH EVENING
     Route: 048
     Dates: start: 20080714
  5. TOPRAL [Concomitant]
     Dosage: 1000 MG, QD
     Route: 048
     Dates: start: 20090807
  6. BYETTA [Suspect]
     Dosage: 10 UG, BID
     Route: 058
     Dates: start: 20091027
  7. ALLOPURINOL [Concomitant]
     Dosage: 300 MG, QD
     Route: 048
     Dates: start: 20090205
  8. VICODIN [Concomitant]
     Dosage: UNK, PRN
     Route: 048
     Dates: start: 20060623
  9. HYDRALAZINE HCL [Concomitant]
     Dosage: 100 MG, BID
     Dates: start: 20090205
  10. FUROSEMIDE [Concomitant]
     Dosage: 40 MG, QD
     Route: 048
     Dates: start: 20060620
  11. BYETTA [Suspect]
     Dosage: 5 UG, BID
     Dates: start: 20080905, end: 20091101
  12. FLOMAX [Concomitant]
     Dosage: 0.4 MG, QD
     Route: 048
     Dates: start: 20090302
  13. NORVASC [Concomitant]
     Dosage: 5 MG, QD
     Route: 048
     Dates: start: 20090205

REACTIONS (3)
  - HYPERTENSION [None]
  - SUDDEN CARDIAC DEATH [None]
  - RENAL FAILURE ACUTE [None]
